FAERS Safety Report 8476543-0 (Version None)
Quarter: 2012Q2

REPORT INFORMATION
  Report Type: 
  Country: None (occurrence: None)
  Receive Date: 20120628
  Receipt Date: 20120615
  Transmission Date: 20120825
  Serious: Yes (Other)
  Sender: FDA-Public Use
  Company Number: GB-MYLANLABS-2012S1012581

PATIENT
  Age: 4 Decade
  Sex: Female

DRUGS (11)
  1. VALGANCICLOVIR [Suspect]
     Indication: ANTIVIRAL PROPHYLAXIS
     Dosage: 900MG DAILY FOR 5M
     Route: 048
  2. GANCICLOVIR [Suspect]
     Indication: CYTOMEGALOVIRUS VIRAEMIA
     Route: 042
  3. TACROLIMUS [Suspect]
     Indication: IMMUNOSUPPRESSANT DRUG THERAPY
     Route: 065
  4. LEFLUNOMIDE [Suspect]
     Dosage: 20MG DAILY MAINTENANCE
     Route: 065
  5. CAMPATH [Suspect]
     Indication: TRANSPLANT REJECTION
     Dosage: ON D8, 12 OF ADMISSION
     Route: 042
  6. LEFLUNOMIDE [Suspect]
     Indication: CYTOMEGALOVIRUS VIRAEMIA
     Dosage: 100MG DAILY FOR 3D; THEN 20MG DAILY
     Route: 065
  7. METHYLPREDNISOLONE [Suspect]
     Indication: TRANSPLANT REJECTION
     Dosage: 500MG DAILY
     Route: 042
  8. VALGANCICLOVIR [Suspect]
     Route: 048
  9. PREDNISOLONE [Suspect]
     Indication: TRANSPLANT REJECTION
     Route: 048
  10. CIDOFOVIR [Suspect]
     Indication: CYTOMEGALOVIRUS VIRAEMIA
     Dosage: RECEIVED 3 DOSES
     Route: 042
  11. FOSCARNET [Suspect]
     Indication: CYTOMEGALOVIRUS VIRAEMIA
     Route: 065

REACTIONS (4)
  - PATHOGEN RESISTANCE [None]
  - CYTOMEGALOVIRUS VIRAEMIA [None]
  - CYTOMEGALOVIRUS INFECTION [None]
  - PERIPHERAL SENSORY NEUROPATHY [None]
